FAERS Safety Report 9426365 (Version 1)
Quarter: 2013Q3

REPORT INFORMATION
  Report Type: Spontaneous
  Country: US (occurrence: US)
  Receive Date: 20130730
  Receipt Date: 20130730
  Transmission Date: 20140515
  Serious: No
  Sender: FDA-Public Use
  Company Number: US-009507513-1307USA013885

PATIENT
  Sex: Female

DRUGS (1)
  1. SINGULAIR [Suspect]
     Dosage: UNK
     Route: 048

REACTIONS (4)
  - Oesophageal polyp [Not Recovered/Not Resolved]
  - Polypectomy [Not Recovered/Not Resolved]
  - Migraine [Not Recovered/Not Resolved]
  - Bronchial disorder [Not Recovered/Not Resolved]
